FAERS Safety Report 6298303-1 (Version None)
Quarter: 2009Q3

REPORT INFORMATION
  Report Type: 
  Country: None (occurrence: None)
  Receive Date: 20090805
  Receipt Date: 20090731
  Transmission Date: 20100115
  Serious: Yes (Hospitalization)
  Sender: FDA-Public Use
  Company Number: FR-WYE-G04160309

PATIENT
  Sex: Male

DRUGS (11)
  1. TAZOCILLINE [Suspect]
     Indication: MORGANELLA INFECTION
     Dosage: UNKNOWN
     Route: 042
     Dates: start: 20090206, end: 20090312
  2. TAZOCILLINE [Suspect]
     Indication: LOCALISED INFECTION
  3. IXPRIM [Suspect]
     Indication: PAIN
     Dosage: UNKNOWN
     Route: 048
     Dates: start: 20090222, end: 20090226
  4. XATRAL [Concomitant]
     Indication: PROSTATIC ADENOMA
     Dosage: UNKNOWN
     Route: 048
     Dates: start: 20090129, end: 20090311
  5. FORLAX [Concomitant]
     Indication: CONSTIPATION
     Dosage: UNKNOWN
     Route: 048
     Dates: start: 20090130, end: 20090312
  6. CALCIPARINE [Concomitant]
     Dosage: UNKNOWN
     Route: 058
     Dates: start: 20090207, end: 20090303
  7. ASPEGIC 1000 [Concomitant]
     Indication: CARDIOMYOPATHY
     Dosage: UNKNOWN
     Route: 048
     Dates: start: 20090207, end: 20090311
  8. LEXOMIL [Concomitant]
     Indication: ANXIETY
     Dosage: UNKNOWN
     Route: 048
     Dates: start: 20090206, end: 20090311
  9. TAVANIC [Suspect]
     Indication: MORGANELLA INFECTION
     Dosage: UNKNOWN
     Route: 042
     Dates: start: 20090214, end: 20090226
  10. TAVANIC [Suspect]
     Indication: LOCALISED INFECTION
  11. TAHOR [Concomitant]
     Indication: DYSLIPIDAEMIA
     Dosage: UNKNOWN
     Route: 048
     Dates: start: 20090130, end: 20090312

REACTIONS (3)
  - C-REACTIVE PROTEIN INCREASED [None]
  - LEUKOPENIA [None]
  - NEUTROPENIA [None]
